FAERS Safety Report 4269454-8 (Version None)
Quarter: 2004Q1

REPORT INFORMATION
  Report Type: 
  Country: None (occurrence: None)
  Receive Date: 20040113
  Receipt Date: 20021009
  Transmission Date: 20041129
  Serious: Yes (Death)
  Sender: FDA-Public Use
  Company Number: US-ROCHE-323228

PATIENT
  Age: 14 Year
  Sex: Male

DRUGS (3)
  1. ACCUTANE [Suspect]
     Route: 048
     Dates: start: 20011202, end: 20020615
  2. ATENDOL [Concomitant]
     Indication: COUGH
  3. TAZORAC [Concomitant]

REACTIONS (5)
  - AFFECT LABILITY [None]
  - COMPLETED SUICIDE [None]
  - COUGH [None]
  - HEADACHE [None]
  - POLYTRAUMATISM [None]
